FAERS Safety Report 12220820 (Version 1)
Quarter: 2016Q1

REPORT INFORMATION
  Report Type: Spontaneous
  Country: US (occurrence: US)
  Receive Date: 20160330
  Receipt Date: 20160330
  Transmission Date: 20160526
  Serious: No
  Sender: FDA-Public Use
  Company Number: US-PFIZER INC-2016132169

PATIENT
  Age: 65 Year
  Sex: Male

DRUGS (3)
  1. SPIRONOLACTONE. [Suspect]
     Active Substance: SPIRONOLACTONE
     Dosage: 25 MG, DAILY
  2. LISINOPRIL. [Interacting]
     Active Substance: LISINOPRIL
     Dosage: 10 MG, DAILY
  3. BUMETANIDE. [Interacting]
     Active Substance: BUMETANIDE
     Dosage: 1X/DAY (1 PO Q AM, 3 PO QPM)
     Route: 048

REACTIONS (1)
  - Drug interaction [Unknown]
